FAERS Safety Report 7957812-7 (Version None)
Quarter: 2011Q4

REPORT INFORMATION
  Report Type: 
  Country: None (occurrence: None)
  Receive Date: 20111130
  Receipt Date: 20111116
  Transmission Date: 20120403
  Serious: Yes (Death, Hospitalization, Other)
  Sender: FDA-Public Use
  Company Number: MPS1-1000592

PATIENT
  Age: 13 Year
  Sex: Male
  Weight: 22.5 kg

DRUGS (1)
  1. ALDURAZYME [Suspect]
     Indication: MUCOPOLYSACCHARIDOSIS I
     Dosage: 100 U/KG, INTRAVENOUS
     Route: 042
     Dates: start: 20050101

REACTIONS (8)
  - SUPRAVENTRICULAR TACHYCARDIA [None]
  - SUDDEN DEATH [None]
  - CARDIAC FAILURE ACUTE [None]
  - CARDIOMYOPATHY [None]
  - DISEASE PROGRESSION [None]
  - PULMONARY HYPERTENSION [None]
  - MUCOPOLYSACCHARIDOSIS I [None]
  - ASTHMA [None]
